FAERS Safety Report 8238098-5 (Version None)
Quarter: 2012Q1

REPORT INFORMATION
  Report Type: 
  Country: None (occurrence: None)
  Receive Date: 20120327
  Receipt Date: 20120322
  Transmission Date: 20120608
  Serious: Yes (Other)
  Sender: FDA-Public Use
  Company Number: NO-GLAXOSMITHKLINE-B0791076A

PATIENT
  Sex: Female

DRUGS (5)
  1. ATORVASTATIN [Concomitant]
     Dates: start: 20070101
  2. EZETIMIBE [Concomitant]
     Dates: start: 20070101
  3. VESICARE [Concomitant]
     Dates: start: 20070701, end: 20111201
  4. OMACOR [Suspect]
     Indication: HYPERTRIGLYCERIDAEMIA
     Dosage: 1000MG PER DAY
     Dates: start: 20110301, end: 20120201
  5. AMILORIDE HCL AND HYDROCHLOROTHIAZIDE [Concomitant]
     Dates: start: 20050101

REACTIONS (2)
  - HYPERGLYCAEMIA [None]
  - HYPOGLYCAEMIA [None]
